FAERS Safety Report 18840245 (Version 1)
Quarter: 2021Q1

REPORT INFORMATION
  Report Type: Spontaneous
  Country: US (occurrence: US)
  Receive Date: 20210203
  Receipt Date: 20210203
  Transmission Date: 20210419
  Serious: No
  Sender: FDA-Public Use
  Company Number: US-PRAGMA-2020-US-007969

PATIENT
  Sex: 0

DRUGS (2)
  1. KEFLEX [Suspect]
     Active Substance: CEPHALEXIN
     Indication: CELLULITIS
     Dosage: 500 MG, 3 TIMES A DAY
     Route: 065
  2. XELJANZ XR [Suspect]
     Active Substance: TOFACITINIB CITRATE
     Dosage: 11 MG ONCE DAILY
     Route: 048
     Dates: start: 20200306

REACTIONS (1)
  - Diarrhoea [Unknown]
